FAERS Safety Report 20016943 (Version 1)
Quarter: 2021Q4

REPORT INFORMATION
  Report Type: Spontaneous
  Country: US (occurrence: US)
  Receive Date: 20211030
  Receipt Date: 20211030
  Transmission Date: 20220304
  Serious: No
  Sender: FDA-Public Use
  Company Number: US-drreddys-SPO/USA/21/0143234

PATIENT
  Age: 14 Year
  Sex: Male

DRUGS (3)
  1. ZENATANE [Suspect]
     Active Substance: ISOTRETINOIN
     Indication: Product used for unknown indication
     Dosage: RMA ISSUE DATE:15 MARCH 2021 4:45:45 PM,14 APRIL 2021 4:28:18 PM
  2. ZENATANE [Suspect]
     Active Substance: ISOTRETINOIN
     Dosage: RMA ISSUE DATE:19 MAY 2021 3:50:34 PM,16 JUNE 2021 12:49:20 PM,21 JULY 2021 3:08:02 PM
  3. ZENATANE [Suspect]
     Active Substance: ISOTRETINOIN
     Dosage: RMA ISSUE DATE:9 SEPTEMBER 2021 8:15:46 PM

REACTIONS (1)
  - Treatment noncompliance [Unknown]
